FAERS Safety Report 18644114 (Version 1)
Quarter: 2020Q4

REPORT INFORMATION
  Report Type: Report from Study
  Country: CZ (occurrence: CZ)
  Receive Date: 20201221
  Receipt Date: 20201221
  Transmission Date: 20210114
  Serious: Yes (Other)
  Sender: FDA-Public Use
  Company Number: CZ-UCBSA-2018026138

PATIENT
  Age: 52 Year
  Sex: Female
  Weight: 77 kg

DRUGS (2)
  1. PLACEBO [Suspect]
     Active Substance: UNSPECIFIED INGREDIENT
     Indication: ANKYLOSING SPONDYLITIS
     Dosage: UNK UNK, EV 2 WEEKS(QOW)
     Dates: start: 20160711, end: 20161017
  2. CERTOLIZUMAB PEGOL [Suspect]
     Active Substance: CERTOLIZUMAB PEGOL
     Indication: ANKYLOSING SPONDYLITIS
     Dosage: 200 MILLIGRAM, EV 2 WEEKS(QOW)
     Route: 058
     Dates: start: 20161031, end: 20170626

REACTIONS (1)
  - Erythema multiforme [Unknown]

NARRATIVE: CASE EVENT DATE: 20180420
